FAERS Safety Report 23842790 (Version 1)
Quarter: 2024Q2

REPORT INFORMATION
  Report Type: Spontaneous
  Country: CA (occurrence: CA)
  Receive Date: 20240510
  Receipt Date: 20240510
  Transmission Date: 20240716
  Serious: Yes (Life-Threatening, Other)
  Sender: FDA-Public Use
  Company Number: CA-BAXTER-2024BAX017962

PATIENT
  Age: 14 Year
  Sex: Male

DRUGS (17)
  1. TISSEEL [Suspect]
     Active Substance: FIBRINOGEN HUMAN\THROMBIN HUMAN
     Indication: Surgery
     Dosage: 1.0 DOSAGE FORMS, AS REQUIRED, DOSAGE FORM: KIT
     Route: 061
  2. TISSEEL [Suspect]
     Active Substance: FIBRINOGEN HUMAN\THROMBIN HUMAN
     Indication: Scoliosis surgery
  3. ALBUREX [Suspect]
     Active Substance: ALBUMIN HUMAN
     Indication: Surgery
     Dosage: 500.0 ML, AS REQUIRED, DOSAGE FORM: SOLUTION INTRAVENOUS
     Route: 041
  4. ALBUREX [Suspect]
     Active Substance: ALBUMIN HUMAN
     Indication: Scoliosis surgery
  5. THROMBIN [Suspect]
     Active Substance: THROMBIN
     Indication: Surgery
     Dosage: 1.0 DOSAGE FORMS, AS REQUIRED
     Route: 061
  6. THROMBIN [Suspect]
     Active Substance: THROMBIN
     Indication: Scoliosis surgery
  7. ANCEF [Concomitant]
     Active Substance: CEFAZOLIN SODIUM
     Dosage: DOSAGE FORM: POWDER FOR SOLUTION INTRAMUSCULAR
     Route: 065
  8. CRYOPRECIPITATED ANTIHEMOPHILIC FACTOR (HUMAN) [Concomitant]
     Active Substance: CRYOPRECIPITATED ANTIHEMOPHILIC FACTOR (HUMAN)
     Dosage: DOSAGE FORM: NOT SPECIFIED
     Route: 065
  9. DDAVP [Concomitant]
     Active Substance: DESMOPRESSIN ACETATE
     Dosage: DOSAGE FORM: NOT SPECIFIED
     Route: 065
  10. DECADRON [Concomitant]
     Active Substance: DEXAMETHASONE
     Dosage: DOSAGE FORM: NOT SPECIFIED
     Route: 065
  11. KETAMINE [Concomitant]
     Active Substance: KETAMINE
     Dosage: DOSAGE FORM: NOT SPECIFIED
     Route: 065
  12. LEVOPHED [Concomitant]
     Active Substance: NOREPINEPHRINE BITARTRATE
     Dosage: DOSAGE FORM: SOLUTION INTRAVENOUS
     Route: 065
  13. PROPOFOL [Concomitant]
     Active Substance: PROPOFOL
     Dosage: DOSAGE FORM: NOT SPECIFIED
     Route: 065
  14. ROCURONIUM [Concomitant]
     Active Substance: ROCURONIUM BROMIDE
     Dosage: DOSAGE FORM: NOT SPECIFIED
     Route: 065
  15. SUFENTANIL [Concomitant]
     Active Substance: SUFENTANIL
     Dosage: DOSAGE FORM: NOT SPECIFIED
     Route: 065
  16. TRANDATE [Concomitant]
     Active Substance: LABETALOL HYDROCHLORIDE
     Dosage: DOSAGE FORM: NOT SPECIFIED
     Route: 065
  17. TRANEXAMIC ACID [Concomitant]
     Active Substance: TRANEXAMIC ACID
     Dosage: DOSAGE FORM: NOT SPECIFIED
     Route: 065

REACTIONS (5)
  - Allergic transfusion reaction [Recovered/Resolved]
  - Rash [Recovered/Resolved]
  - Bronchospasm [Recovered/Resolved]
  - Heart rate increased [Recovered/Resolved]
  - Hypotension [Recovered/Resolved]
